FAERS Safety Report 14961599 (Version 1)
Quarter: 2018Q2

REPORT INFORMATION
  Report Type: Spontaneous
  Country: US (occurrence: US)
  Receive Date: 20180601
  Receipt Date: 20180601
  Transmission Date: 20180711
  Serious: No
  Sender: FDA-Public Use
  Company Number: US-BRISTOL-MYERS SQUIBB COMPANY-BMS-2018-050604

PATIENT
  Sex: Female

DRUGS (2)
  1. ELIQUIS [Suspect]
     Active Substance: APIXABAN
     Indication: PRODUCT USED FOR UNKNOWN INDICATION
     Dosage: 5 MG, BID
     Route: 065
     Dates: start: 20180530
  2. ALLI [Interacting]
     Active Substance: ORLISTAT
     Indication: MEDICAL DIET
     Route: 065

REACTIONS (2)
  - Coccydynia [Unknown]
  - Drug interaction [Unknown]

NARRATIVE: CASE EVENT DATE: 20180530
